FAERS Safety Report 7619624-3 (Version None)
Quarter: 2011Q3

REPORT INFORMATION
  Report Type: 
  Country: None (occurrence: None)
  Receive Date: 20110719
  Receipt Date: 20110705
  Transmission Date: 20111222
  Serious: Yes (Hospitalization, Disabling)
  Sender: FDA-Public Use
  Company Number: CH-BAYER-201012453GPV

PATIENT
  Age: 61 Year
  Sex: Male

DRUGS (24)
  1. TIZANIDINE HYDROCHLORIDE [Concomitant]
  2. OXYGEN [Concomitant]
  3. SPIRIVA [Concomitant]
  4. POTASSIUM CHLORIDE [Concomitant]
  5. FLUOXETINE [Concomitant]
  6. PANTOPRAZOLE SODIUM [Concomitant]
  7. ZETIA [Concomitant]
  8. ADVAIR DISKUS 100/50 [Concomitant]
  9. ASPIRIN [Concomitant]
  10. EXTAVIA [Suspect]
     Indication: MULTIPLE SCLEROSIS
     Dosage: 0.25 MG, QOD
     Route: 058
     Dates: start: 20091215
  11. SIMVASTATIN [Concomitant]
  12. FUROSEMIDE [Concomitant]
  13. CYANOCOBALAMIN [Concomitant]
  14. PROTONIX [Concomitant]
  15. PROVIGIL [Concomitant]
  16. ACETYLSALICYLIC ACID SRT [Concomitant]
  17. FISH OIL [Concomitant]
  18. CALCIUM WITH VITAMIN D [Concomitant]
  19. AMLODIPINE W/BENAZEPRIL [Concomitant]
  20. CITALOPRAM HYDROBROMIDE [Concomitant]
  21. BACLOFEN [Concomitant]
  22. LAMOTRIGINE [Concomitant]
  23. HEPAGRISEVIT FORTE-N [CYANOCOBALAMIN,FOLIC ACID,PYRIDOXINE HYDROCH [Concomitant]
  24. KLOR-CON [Concomitant]

REACTIONS (7)
  - INJECTION SITE SCAB [None]
  - LIMB DISCOMFORT [None]
  - MUSCULOSKELETAL STIFFNESS [None]
  - INJECTION SITE MASS [None]
  - COLITIS [None]
  - INJECTION SITE HAEMATOMA [None]
  - INJECTION SITE PAIN [None]
